FAERS Safety Report 4954471-2 (Version None)
Quarter: 2006Q1

REPORT INFORMATION
  Report Type: 
  Country: None (occurrence: None)
  Receive Date: 20060322
  Receipt Date: 20060308
  Transmission Date: 20060701
  Serious: Yes (Other)
  Sender: FDA-Public Use
  Company Number: GXKR2005BR01904

PATIENT
  Age: 43 Year
  Sex: Female
  Weight: 58 kg

DRUGS (3)
  1. MIRTAZAPINE (NGX)(MIRTAZAPINE) TABLET [Suspect]
     Indication: ANTIDEPRESSANT THERAPY
     Dosage: 30 MG, ORAL
     Route: 048
     Dates: start: 20050913
  2. CITALOPRAM HYDROBROMIDE [Suspect]
     Dates: start: 20050913
  3. FORASEQ (BUDESONIDE, FORMOTEROL) INHALER [Concomitant]

REACTIONS (10)
  - BLISTER [None]
  - DIZZINESS [None]
  - DRY SKIN [None]
  - FALL [None]
  - INSOMNIA [None]
  - MUSCLE SPASMS [None]
  - PHARMACEUTICAL PRODUCT COMPLAINT [None]
  - PRURITUS [None]
  - SOMNOLENCE [None]
  - THERAPY NON-RESPONDER [None]
